FAERS Safety Report 5418466-7 (Version None)
Quarter: 2007Q3

REPORT INFORMATION
  Report Type: 
  Country: None (occurrence: None)
  Receive Date: 20070817
  Receipt Date: 20070806
  Transmission Date: 20080115
  Serious: Yes (Other)
  Sender: FDA-Public Use
  Company Number: US-ELI_LILLY_AND_COMPANY-US200707006888

PATIENT
  Age: 37 Year
  Sex: Female

DRUGS (3)
  1. PROZAC [Suspect]
     Indication: ANXIETY
     Dosage: 20 MG, UNK
     Route: 048
     Dates: start: 19880101
  2. ATIVAN [Concomitant]
  3. TOPROL-XL [Concomitant]

REACTIONS (6)
  - DYSGEUSIA [None]
  - DYSPEPSIA [None]
  - HEART RATE IRREGULAR [None]
  - PALPITATIONS [None]
  - PAROSMIA [None]
  - THYROID CANCER [None]
